FAERS Safety Report 8909245 (Version 1)
Quarter: 2012Q4

REPORT INFORMATION
  Report Type: Spontaneous
  Country: DK (occurrence: None)
  Receive Date: 20121106
  Receipt Date: 20121106
  Transmission Date: 20130627
  Serious: Yes (Hospitalization)
  Sender: FDA-Public Use
  Company Number: 2012MA012776

PATIENT
  Age: 39 Year
  Sex: Male

DRUGS (3)
  1. IBUPROFEN [Suspect]
     Indication: BACK PAIN
     Dates: start: 200904
  2. DICLON [Suspect]
     Indication: BACK PAIN
     Dates: start: 200904
  3. IBUPROFEN [Suspect]
     Indication: BACK PAIN
     Dates: start: 200904

REACTIONS (12)
  - Gastric ulcer [None]
  - Hypersensitivity [None]
  - Asthma [None]
  - Nasal polyps [None]
  - Anosmia [None]
  - Seasonal allergy [None]
  - Eosinophilia [None]
  - Inflammation [None]
  - Bone disorder [None]
  - Discomfort [None]
  - Vomiting [None]
  - Nausea [None]
